FAERS Safety Report 9004108 (Version 1)
Quarter: 2013Q1

REPORT INFORMATION
  Report Type: Spontaneous
  Country: US (occurrence: US)
  Receive Date: 20130109
  Receipt Date: 20130109
  Transmission Date: 20140127
  Serious: No
  Sender: FDA-Public Use
  Company Number: US-BIOGENIDEC-2013BI000366

PATIENT
  Sex: Female

DRUGS (1)
  1. TYSABRI [Suspect]
     Indication: MULTIPLE SCLEROSIS
     Route: 042
     Dates: start: 20120320, end: 20120614

REACTIONS (3)
  - Hyperventilation [Recovered/Resolved]
  - Delirium [Recovered/Resolved]
  - Visual impairment [Not Recovered/Not Resolved]
